FAERS Safety Report 23684872 (Version 1)
Quarter: 2024Q1

REPORT INFORMATION
  Report Type: Spontaneous
  Country: IT (occurrence: IT)
  Receive Date: 20240328
  Receipt Date: 20240328
  Transmission Date: 20240410
  Serious: Yes (Other)
  Sender: FDA-Public Use
  Company Number: IT-JNJFOC-20240359713

PATIENT
  Age: 68 Year
  Sex: Female

DRUGS (1)
  1. RISPERDAL [Suspect]
     Active Substance: RISPERIDONE
     Indication: Product used for unknown indication
     Dosage: 47 CPS
     Route: 048

REACTIONS (3)
  - Intentional self-injury [Unknown]
  - Overdose [Unknown]
  - Intentional product misuse [Unknown]
